FAERS Safety Report 6996022-7 (Version None)
Quarter: 2010Q3

REPORT INFORMATION
  Report Type: 
  Country: None (occurrence: None)
  Receive Date: 20100918
  Receipt Date: 20081202
  Transmission Date: 20110219
  Serious: No
  Sender: FDA-Public Use
  Company Number: US-WYE-H07073808

PATIENT
  Sex: Female
  Weight: 54.03 kg

DRUGS (3)
  1. PREMPHASE 14/14 [Suspect]
     Indication: OSTEOPOROSIS
     Dosage: 0.625 MG DAILY
     Route: 048
     Dates: start: 19930101, end: 20080301
  2. BENICAR [Concomitant]
  3. DYNACIRC [Concomitant]

REACTIONS (2)
  - POLLAKIURIA [None]
  - URINARY RETENTION [None]
